FAERS Safety Report 10710912 (Version 4)
Quarter: 2015Q4

REPORT INFORMATION
  Report Type: Report from Study
  Country: BR (occurrence: BR)
  Receive Date: 20150114
  Receipt Date: 20151006
  Transmission Date: 20160304
  Serious: Yes (Other)
  Sender: FDA-Public Use
  Company Number: BR-ABBVIE-15K-020-1331031-00

PATIENT
  Sex: Female
  Weight: 71 kg

DRUGS (9)
  1. TECNOMET [Concomitant]
     Active Substance: METHOTREXATE
     Indication: PAIN
     Route: 048
     Dates: start: 2012
  2. VELIJA [Concomitant]
     Active Substance: DULOXETINE HYDROCHLORIDE
     Indication: ANXIETY
     Route: 048
     Dates: start: 2008
  3. HUMIRA [Suspect]
     Active Substance: ADALIMUMAB
     Indication: ANKYLOSING SPONDYLITIS
     Route: 058
     Dates: start: 20130216
  4. TECNOMET [Concomitant]
     Active Substance: METHOTREXATE
     Indication: ARTHRITIS
  5. ENDOFOLIN [Concomitant]
     Active Substance: FOLIC ACID
     Indication: PAIN
     Route: 048
     Dates: start: 2012
  6. TECNOMET [Concomitant]
     Active Substance: METHOTREXATE
     Indication: ANKYLOSING SPONDYLITIS
  7. ENDOFOLIN [Concomitant]
     Active Substance: FOLIC ACID
     Indication: ARTHRITIS
  8. ENDOFOLIN [Concomitant]
     Active Substance: FOLIC ACID
     Indication: ANKYLOSING SPONDYLITIS
  9. PURAN [Concomitant]
     Active Substance: LEVOTHYROXINE SODIUM
     Indication: THYROID DISORDER
     Route: 048
     Dates: start: 2009

REACTIONS (12)
  - Shoulder operation [Not Recovered/Not Resolved]
  - Exostosis [Recovered/Resolved]
  - Drug ineffective [Unknown]
  - Spinal pain [Not Recovered/Not Resolved]
  - Procedural pain [Not Recovered/Not Resolved]
  - Arthralgia [Not Recovered/Not Resolved]
  - Local swelling [Not Recovered/Not Resolved]
  - Musculoskeletal pain [Unknown]
  - Spinal cord oedema [Not Recovered/Not Resolved]
  - Skin cancer [Recovered/Resolved]
  - Bone pain [Not Recovered/Not Resolved]
  - Neck pain [Not Recovered/Not Resolved]
